FAERS Safety Report 14829050 (Version 1)
Quarter: 2018Q2

REPORT INFORMATION
  Report Type: Report from Study
  Country: DE (occurrence: DE)
  Receive Date: 20180430
  Receipt Date: 20180430
  Transmission Date: 20180711
  Serious: Yes (Other)
  Sender: FDA-Public Use
  Company Number: DE-PFIZER INC-2018171380

PATIENT
  Age: 58 Year
  Sex: Female
  Weight: 90 kg

DRUGS (9)
  1. OXALIPLATIN. [Suspect]
     Active Substance: OXALIPLATIN
     Indication: COLORECTAL CANCER
     Dosage: 161.5 MG, EVERY 2 WEEKS
     Route: 042
     Dates: start: 20130116
  2. FOLINIC ACID [Concomitant]
     Active Substance: LEUCOVORIN
     Indication: COLORECTAL CANCER
     Dosage: 380 MG, UNK
     Route: 042
     Dates: start: 20130116
  3. 5-FLUOROURACIL [Suspect]
     Active Substance: FLUOROURACIL
     Dosage: 4000 MG, WEEKLY
     Route: 041
     Dates: start: 20131015
  4. FOLINIC ACID [Concomitant]
     Active Substance: LEUCOVORIN
     Dosage: 1000 MG, WEEKLY
     Route: 042
     Dates: start: 20131015
  5. AVASTIN /00848101/ [Suspect]
     Active Substance: SIMVASTATIN
     Indication: COLORECTAL CANCER METASTATIC
     Dosage: 495 MG, EVERY 2 WEEKS
     Route: 042
     Dates: start: 20131008, end: 20140805
  6. AVASTIN /00848101/ [Suspect]
     Active Substance: SIMVASTATIN
     Dosage: 450 MG, EVERY 2 WEEKS
     Route: 042
     Dates: start: 20130117
  7. 5-FLUOROURACIL [Suspect]
     Active Substance: FLUOROURACIL
     Dosage: 760 MG, UNK
     Route: 040
  8. 5-FLUOROURACIL [Suspect]
     Active Substance: FLUOROURACIL
     Indication: COLORECTAL CANCER
     Dosage: 1140 MG, UNK
     Route: 041
     Dates: start: 20130116
  9. IRINOTECAN HCL [Suspect]
     Active Substance: IRINOTECAN HYDROCHLORIDE
     Indication: COLORECTAL CANCER
     Dosage: 160 MG, WEEKLY
     Route: 042
     Dates: start: 20131007

REACTIONS (7)
  - Arthralgia [Recovered/Resolved]
  - Vomiting [Recovered/Resolved]
  - Skin disorder [Recovered/Resolved]
  - Fatigue [Recovered/Resolved]
  - Nausea [Recovered/Resolved]
  - Polyneuropathy [Recovered/Resolved]
  - Back pain [Recovered/Resolved]

NARRATIVE: CASE EVENT DATE: 20130212
